FAERS Safety Report 9255893 (Version 2)
Quarter: 2013Q2

REPORT INFORMATION
  Report Type: Report from Study
  Country: US (occurrence: US)
  Receive Date: 20130425
  Receipt Date: 20130508
  Transmission Date: 20140414
  Serious: Yes (Death)
  Sender: FDA-Public Use
  Company Number: US-ACTELION-A-NJ2013-82346

PATIENT
  Age: 41 Year
  Sex: Female

DRUGS (2)
  1. VELETRI [Suspect]
     Indication: PULMONARY ARTERIAL HYPERTENSION
     Dosage: 17.2 NG/KG, PER MIN
     Route: 041
     Dates: start: 20110729, end: 20130414
  2. ADCIRCA [Concomitant]
     Dosage: UNK

REACTIONS (1)
  - Death [Fatal]
